FAERS Safety Report 7936595-0 (Version None)
Quarter: 2011Q4

REPORT INFORMATION
  Report Type: 
  Country: None (occurrence: None)
  Receive Date: 20111123
  Receipt Date: 20111110
  Transmission Date: 20120403
  Serious: Yes (Death)
  Sender: FDA-Public Use
  Company Number: US-PFIZER INC-2011285339

PATIENT
  Sex: Male

DRUGS (2)
  1. MS CONTIN [Suspect]
  2. NORCO [Suspect]
     Indication: NEOPLASM MALIGNANT

REACTIONS (1)
  - NEOPLASM MALIGNANT [None]
